FAERS Safety Report 14530781 (Version 1)
Quarter: 2018Q1

REPORT INFORMATION
  Report Type: Report from Study
  Country: US (occurrence: US)
  Receive Date: 20180214
  Receipt Date: 20180214
  Transmission Date: 20180509
  Serious: Yes (Other)
  Sender: FDA-Public Use
  Company Number: PHHO2011US022431

PATIENT
  Age: 10 Year
  Sex: Female
  Weight: 35.4 kg

DRUGS (2)
  1. SB497115 [Suspect]
     Active Substance: ELTROMBOPAG
     Indication: IMMUNE THROMBOCYTOPENIC PURPURA
     Dosage: QD
     Route: 048
     Dates: start: 20101209, end: 20110518
  2. PLACEBO [Suspect]
     Active Substance: UNSPECIFIED INGREDIENT
     Indication: IMMUNE THROMBOCYTOPENIC PURPURA
     Dosage: QD
     Route: 048
     Dates: start: 20101011, end: 20101208

REACTIONS (1)
  - Vitreous opacities [Not Recovered/Not Resolved]

NARRATIVE: CASE EVENT DATE: 20110518
